FAERS Safety Report 5083292-8 (Version None)
Quarter: 2006Q3

REPORT INFORMATION
  Report Type: 
  Country: None (occurrence: None)
  Receive Date: 20060818
  Receipt Date: 20060805
  Transmission Date: 20061208
  Serious: Yes (Other)
  Sender: FDA-Public Use
  Company Number: US-AMGEN-US189606

PATIENT
  Age: 60 Year
  Sex: Male

DRUGS (1)
  1. PROCRIT [Suspect]
     Indication: ANAEMIA
     Route: 065
     Dates: start: 20060601

REACTIONS (2)
  - BONE MARROW FAILURE [None]
  - THERAPY NON-RESPONDER [None]
